FAERS Safety Report 23161606 (Version 2)
Quarter: 2023Q4

REPORT INFORMATION
  Report Type: Report from Study
  Country: US (occurrence: US)
  Receive Date: 20231108
  Receipt Date: 20231109
  Transmission Date: 20240109
  Serious: Yes (Death)
  Sender: FDA-Public Use
  Company Number: US-ABBVIE-4327949

PATIENT
  Sex: Female

DRUGS (3)
  1. VENCLEXTA [Suspect]
     Active Substance: VENETOCLAX
     Indication: Myelodysplastic syndrome with excess blasts
     Dosage: FORM STRENGTH: 100 MG?TOOK TWO TABLETS BY MOUTH EVERY DAY
     Route: 048
  2. VENCLEXTA [Suspect]
     Active Substance: VENETOCLAX
     Indication: Myelodysplastic syndrome with excess blasts
     Dosage: FORM STRENGTH: 100MG?TAKE 1 TABLET BY MOUTH ON DAY 1
     Route: 048
  3. VENCLEXTA [Suspect]
     Active Substance: VENETOCLAX
     Indication: Myelodysplastic syndrome with excess blasts
     Dosage: TAKE 4 TABLETS BY MOUTH DAILY?STRENGTH: 100 MG
     Route: 048

REACTIONS (2)
  - Death [Fatal]
  - Off label use [Unknown]
